FAERS Safety Report 7373476 (Version 2)
Quarter: 2013Q4

REPORT INFORMATION
  Report Type: Spontaneous
  Country: US (occurrence: US)
  Receive Date: 20100503
  Receipt Date: 20131212
  Transmission Date: 20140711
  Serious: No
  Sender: FDA-Public Use
  Company Number: US-ASTRAZENECA-2010SE18828

PATIENT
  Age: 56 Year
  Sex: Male
  Weight: 114.3 kg

DRUGS (16)
  1. SYMBICORT [Suspect]
     Indication: CHRONIC OBSTRUCTIVE PULMONARY DISEASE
     Dosage: 320 MCG BID
     Route: 055
     Dates: start: 200811
  2. SYMBICORT [Suspect]
     Indication: ASTHMA
     Dosage: 320 MCG BID
     Route: 055
     Dates: start: 200811
  3. SYMBICORT [Suspect]
     Indication: PNEUMOTHORAX
     Dosage: 320 MCG BID
     Route: 055
     Dates: start: 200811
  4. SYMBICORT [Suspect]
     Indication: CHRONIC OBSTRUCTIVE PULMONARY DISEASE
     Dosage: 160/4.5, 2 PUFFS BID
     Route: 055
     Dates: end: 201308
  5. SYMBICORT [Suspect]
     Indication: ASTHMA
     Dosage: 160/4.5, 2 PUFFS BID
     Route: 055
     Dates: end: 201308
  6. SYMBICORT [Suspect]
     Indication: PNEUMOTHORAX
     Dosage: 160/4.5, 2 PUFFS BID
     Route: 055
     Dates: end: 201308
  7. ENALAPRIL [Concomitant]
  8. ENALAPRIL [Concomitant]
     Route: 048
  9. HYDROCHLORTHIAZIDE [Concomitant]
  10. HYDROCHLORTHIAZIDE [Concomitant]
     Route: 048
  11. ASPIRIN [Concomitant]
     Indication: ANTICOAGULANT THERAPY
     Route: 048
  12. OXYGEN [Concomitant]
  13. ALBUTEROL [Concomitant]
     Indication: RESPIRATORY DISORDER
     Dosage: 90 MCG 2 PUFFS PRN
     Route: 055
  14. ZOLOFT [Concomitant]
     Dosage: GENERIC, 50 MG DAILY
     Route: 048
  15. TIOTROPIUM [Concomitant]
     Indication: RESPIRATORY DISORDER
     Route: 055
  16. TRAMADOL [Concomitant]
     Indication: RESPIRATORY DISORDER
     Route: 055

REACTIONS (1)
  - Drug dose omission [Not Recovered/Not Resolved]
